FAERS Safety Report 7213539-0 (Version None)
Quarter: 2011Q1

REPORT INFORMATION
  Report Type: 
  Country: None (occurrence: None)
  Receive Date: 20110106
  Receipt Date: 20110103
  Transmission Date: 20110831
  Serious: Yes (Other)
  Sender: FDA-Public Use
  Company Number: FR-PFIZER INC-2010163580

PATIENT
  Age: 36 Year
  Sex: Female

DRUGS (2)
  1. RIVOTRIL [Concomitant]
     Dosage: UNK
     Dates: start: 20101005
  2. CELEBREX [Suspect]
     Indication: NECK PAIN
     Dosage: 200 MG, 1X/DAY
     Route: 048
     Dates: start: 20101005, end: 20101012

REACTIONS (2)
  - HYPOTENSION [None]
  - BRADYCARDIA [None]
